FAERS Safety Report 5620189-6 (Version None)
Quarter: 2008Q1

REPORT INFORMATION
  Report Type: 
  Country: None (occurrence: None)
  Receive Date: 20080208
  Receipt Date: 20080129
  Transmission Date: 20080703
  Serious: Yes (Other)
  Sender: FDA-Public Use
  Company Number: US-SANOFI-SYNTHELABO-A03200800073

PATIENT
  Sex: Female
  Weight: 59.9 kg

DRUGS (5)
  1. AMBIEN CR [Suspect]
     Indication: INITIAL INSOMNIA
     Route: 048
     Dates: start: 20071119, end: 20071119
  2. WELLBUTRIN XL [Concomitant]
     Indication: ANXIETY DISORDER
     Route: 065
     Dates: start: 20050101
  3. WELLBUTRIN XL [Concomitant]
     Indication: DEPRESSION
     Route: 065
     Dates: start: 20050101
  4. CYMBALTA [Concomitant]
     Indication: ANXIETY DISORDER
     Route: 065
     Dates: start: 20050101
  5. CYMBALTA [Concomitant]
     Indication: DEPRESSION
     Route: 065
     Dates: start: 20050101

REACTIONS (3)
  - CONVULSION [None]
  - NAUSEA [None]
  - VOMITING [None]
